FAERS Safety Report 22781278 (Version 4)
Quarter: 2023Q4

REPORT INFORMATION
  Report Type: Report from Study
  Country: US (occurrence: US)
  Receive Date: 20230803
  Receipt Date: 20231011
  Transmission Date: 20240110
  Serious: Yes (Other)
  Sender: FDA-Public Use
  Company Number: US-ALNYLAM PHARMACEUTICALS, INC.-ALN-2023-003703

PATIENT

DRUGS (2)
  1. AMVUTTRA [Suspect]
     Active Substance: VUTRISIRAN
     Indication: Hereditary neuropathic amyloidosis
     Dosage: 25 MILLIGRAM, Q3M
     Route: 058
     Dates: start: 202211
  2. AMVUTTRA [Suspect]
     Active Substance: VUTRISIRAN
     Dosage: 25MG/0.5ML, EVERY 3 MONTHS, (Q3M)
     Route: 058
     Dates: start: 20230118

REACTIONS (7)
  - Ventricular tachycardia [Recovered/Resolved]
  - Cardiac amyloidosis [Recovering/Resolving]
  - Tremor [Recovering/Resolving]
  - Pain in extremity [Recovering/Resolving]
  - Hypoaesthesia [Recovering/Resolving]
  - Muscle twitching [Recovering/Resolving]
  - Burning sensation [Unknown]

NARRATIVE: CASE EVENT DATE: 20230101
